FAERS Safety Report 12491616 (Version 1)
Quarter: 2016Q2

REPORT INFORMATION
  Report Type: Spontaneous
  Country: US (occurrence: None)
  Receive Date: 20160622
  Receipt Date: 20160622
  Transmission Date: 20160815
  Serious: Yes (Other)
  Sender: FDA-Public Use
  Company Number: None

PATIENT
  Age: 66 Year
  Sex: Female
  Weight: 75.75 kg

DRUGS (7)
  1. LINZESS [Suspect]
     Active Substance: LINACLOTIDE
     Indication: CONSTIPATION
     Dosage: IN THE MORNING
     Route: 048
     Dates: start: 20160615, end: 20160618
  2. ALPRAZOLAM. [Concomitant]
     Active Substance: ALPRAZOLAM
  3. HYDROCHOLOROTHIAZIDE [Concomitant]
     Active Substance: HYDROCHLOROTHIAZIDE
  4. B-6 [Concomitant]
  5. MULTI VITAMIN [Concomitant]
     Active Substance: VITAMINS
  6. ZOCOR [Concomitant]
     Active Substance: SIMVASTATIN
  7. LOW DOSE ASPIRIN [Concomitant]
     Active Substance: ASPIRIN

REACTIONS (8)
  - Swelling face [None]
  - Abdominal discomfort [None]
  - Nausea [None]
  - Dizziness [None]
  - Fatigue [None]
  - Rash [None]
  - Pharyngeal oedema [None]
  - Asthenia [None]

NARRATIVE: CASE EVENT DATE: 20160618
